FAERS Safety Report 13255013 (Version 1)
Quarter: 2017Q1

REPORT INFORMATION
  Report Type: Spontaneous
  Country: US (occurrence: US)
  Receive Date: 20170217
  Receipt Date: 20170217
  Transmission Date: 20170428
  Serious: Yes (Death)
  Sender: FDA-Public Use
  Company Number: None

PATIENT
  Age: 54 Year

DRUGS (2)
  1. GRANISETRON [Suspect]
     Active Substance: GRANISETRON
     Indication: PROSTATIC DISORDER
     Dosage: ?          OTHER FREQUENCY:WEEKLY;?
     Route: 042
  2. DEXAMETHASONE. [Suspect]
     Active Substance: DEXAMETHASONE
     Indication: PROSTATIC DISORDER
     Dosage: ?          OTHER FREQUENCY:WEEKLY;?
     Route: 030

REACTIONS (1)
  - Death [None]
